FAERS Safety Report 10655649 (Version 1)
Quarter: 2014Q4

REPORT INFORMATION
  Report Type: Spontaneous
  Country: IT (occurrence: IT)
  Receive Date: 20141216
  Receipt Date: 20141216
  Transmission Date: 20150529
  Serious: Yes (Hospitalization)
  Sender: FDA-Public Use
  Company Number: IT-BAYER-2014-184255

PATIENT
  Age: 15 Year
  Sex: Female
  Weight: 70 kg

DRUGS (2)
  1. ISOPTIN [Suspect]
     Active Substance: VERAPAMIL HYDROCHLORIDE
     Indication: INTENTIONAL SELF-INJURY
     Dosage: 1200 MG, ONCE
     Route: 048
     Dates: start: 20141106, end: 20141106
  2. CARDIOASPIRIN [Suspect]
     Active Substance: ASPIRIN
     Indication: INTENTIONAL SELF-INJURY
     Dosage: 3000 MG, ONCE
     Route: 048
     Dates: start: 20141106, end: 20141106

REACTIONS (3)
  - Hyperglycaemia [Recovering/Resolving]
  - Drug abuse [Recovering/Resolving]
  - Hyperchlorhydria [Recovering/Resolving]

NARRATIVE: CASE EVENT DATE: 20141106
